FAERS Safety Report 8848709 (Version 2)
Quarter: 2013Q1

REPORT INFORMATION
  Report Type: Spontaneous
  Country: DK (occurrence: None)
  Receive Date: 20121015
  Receipt Date: 20121106
  Transmission Date: 20140127
  Serious: Yes (Hospitalization)
  Sender: FDA-Public Use
  Company Number: 2012MA012235

PATIENT
  Age: 80 Year
  Sex: Male

DRUGS (11)
  1. METFORMIN HYDROCHLORIDE [Suspect]
     Indication: TYPE 2 DIABETES MELLITUS
  2. JANUVIA [Suspect]
     Indication: DIABETES MELLITUS
     Dates: start: 20110406
  3. DIURAL [Concomitant]
  4. LISINOPRIL/HYDROCHLOROTHIAZIDE [Concomitant]
  5. SIMVASTATIN [Concomitant]
  6. OXAPAX [Concomitant]
  7. ZOPICLONE [Concomitant]
  8. VENTOLINE [Concomitant]
  9. SYMBICORT [Concomitant]
  10. SPIRIVA [Concomitant]
  11. SERETIDE [Concomitant]

REACTIONS (8)
  - Chronic obstructive pulmonary disease [None]
  - Blood lactic acid increased [None]
  - Syncope [None]
  - Blood glucose increased [None]
  - Drug interaction [None]
  - Blood pH decreased [None]
  - PCO2 increased [None]
  - Blood urea increased [None]
